FAERS Safety Report 8760858 (Version 3)
Quarter: 2013Q3

REPORT INFORMATION
  Report Type: Report from Study
  Country: JP (occurrence: JP)
  Receive Date: 20120830
  Receipt Date: 20130813
  Transmission Date: 20140515
  Serious: Yes (Life-Threatening, Other)
  Sender: FDA-Public Use
  Company Number: JP-GENZYME-THYM-1003387

PATIENT
  Age: 45 Year
  Sex: Male
  Weight: 80 kg

DRUGS (171)
  1. THYMOGLOBULIN [Suspect]
     Indication: APLASTIC ANAEMIA
     Dosage: 290 MG, QD
     Route: 065
     Dates: start: 20120730, end: 20120803
  2. NEORAL [Concomitant]
     Indication: APLASTIC ANAEMIA
     Dosage: UNK
     Route: 065
     Dates: start: 20120730
  3. NEORAL [Concomitant]
     Dosage: UNK
     Route: 065
     Dates: start: 20120803, end: 20120803
  4. NEORAL [Concomitant]
     Dosage: UNK
     Dates: start: 20120802, end: 20120802
  5. NEORAL [Concomitant]
     Dosage: UNK
     Route: 065
     Dates: start: 20120730, end: 20120730
  6. NEORAL [Concomitant]
     Dosage: UNK
     Route: 065
     Dates: start: 20120806, end: 20120806
  7. NEORAL [Concomitant]
     Dosage: UNK
     Dates: start: 20120813, end: 20120813
  8. NEORAL [Concomitant]
     Dosage: UNK
     Route: 065
     Dates: start: 20120810, end: 20120810
  9. NEORAL [Concomitant]
     Dosage: UNK
     Route: 065
     Dates: start: 20120817, end: 20120817
  10. NEORAL [Concomitant]
     Dosage: UNK
     Route: 065
     Dates: start: 20120820, end: 20120820
  11. NEORAL [Concomitant]
     Dosage: UNK
     Route: 065
     Dates: start: 20121107
  12. TAKEPRON [Concomitant]
     Indication: PROPHYLAXIS AGAINST GASTROINTESTINAL ULCER
     Dosage: UNK
     Route: 065
     Dates: start: 20120802, end: 20120802
  13. TAKEPRON [Concomitant]
     Dosage: UNK
     Route: 065
     Dates: start: 20120809, end: 20120809
  14. TAKEPRON [Concomitant]
     Dosage: UNK
     Route: 065
     Dates: start: 20120821, end: 20120821
  15. TAKEPRON [Concomitant]
     Dosage: UNK
     Route: 065
     Dates: start: 20120817, end: 20120817
  16. TAKEPRON [Concomitant]
     Dosage: UNK
     Route: 065
     Dates: start: 20120816, end: 20120816
  17. TAKEPRON [Concomitant]
     Dosage: UNK
     Route: 065
  18. SULFAMETHOPRIM [Concomitant]
     Indication: PRODUCT USED FOR UNKNOWN INDICATION
     Dosage: UNK
     Route: 065
     Dates: start: 20120802, end: 20120802
  19. SULFAMETHOPRIM [Concomitant]
     Indication: INFECTION PROPHYLAXIS
     Dosage: UNK
     Route: 065
     Dates: start: 20120802, end: 20120802
  20. SULFAMETHOPRIM [Concomitant]
     Dosage: UNK
     Route: 065
     Dates: start: 20120809, end: 20120809
  21. SULFAMETHOPRIM [Concomitant]
     Dosage: UNK
     Route: 065
     Dates: start: 20120816, end: 20120816
  22. VALTREX [Concomitant]
     Indication: ANTIVIRAL PROPHYLAXIS
     Dosage: UNK
     Route: 065
     Dates: start: 20120802, end: 20120802
  23. VALTREX [Concomitant]
     Dosage: UNK
     Route: 065
     Dates: start: 20120809, end: 20120809
  24. VALTREX [Concomitant]
     Dosage: UNK
     Route: 065
     Dates: start: 20120817, end: 20120817
  25. VALTREX [Concomitant]
     Dosage: UNK
     Route: 065
     Dates: start: 20120816, end: 20120816
  26. VALTREX [Concomitant]
  27. VALTREX [Concomitant]
     Dosage: UNK
     Route: 065
     Dates: start: 20120816, end: 20120821
  28. VALTREX [Concomitant]
     Dosage: UNK
     Route: 065
     Dates: start: 20121004
  29. VALTREX [Concomitant]
     Dosage: UNK
     Route: 065
     Dates: start: 20120830, end: 20120912
  30. PROMAC [Concomitant]
     Indication: PROPHYLAXIS AGAINST GASTROINTESTINAL ULCER
     Dosage: UNK
     Route: 065
     Dates: start: 20120802, end: 20120802
  31. PROMAC [Concomitant]
     Dosage: UNK
     Route: 065
     Dates: end: 20120803
  32. PROMAC [Concomitant]
     Dosage: UNK
     Route: 065
     Dates: start: 20120927, end: 20121004
  33. ITRIZOLE [Concomitant]
     Indication: INFECTION PROPHYLAXIS
     Dosage: UNK
     Route: 065
     Dates: start: 20120802, end: 20120802
  34. ITRIZOLE [Concomitant]
     Dosage: UNK
     Route: 065
     Dates: start: 20120802, end: 20120802
  35. ITRIZOLE [Concomitant]
     Dosage: UNK
     Route: 065
     Dates: start: 20120809, end: 20120809
  36. ITRIZOLE [Concomitant]
     Dosage: UNK
     Route: 065
     Dates: start: 20120816, end: 20120816
  37. ITRIZOLE [Concomitant]
     Dosage: UNK
     Route: 065
  38. ANTIBIOTICS-RESISTANT LACTIC ACID BACTERIAE [Concomitant]
     Indication: PRODUCT USED FOR UNKNOWN INDICATION
     Dosage: UNK
     Route: 065
     Dates: start: 20120802, end: 20120802
  39. ANTIBIOTICS-RESISTANT LACTIC ACID BACTERIAE [Concomitant]
     Dosage: UNK
     Route: 065
     Dates: start: 20120809, end: 20120809
  40. ANTIBIOTICS-RESISTANT LACTIC ACID BACTERIAE [Concomitant]
     Dosage: UNK
     Route: 065
     Dates: start: 20120816, end: 20120816
  41. FUNGIZONE [Concomitant]
     Indication: PROPHYLAXIS
     Dosage: UNK
     Route: 065
     Dates: start: 20120801, end: 20120801
  42. FUNGIZONE [Concomitant]
     Dosage: UNK
     Route: 065
     Dates: start: 20120805, end: 20120805
  43. FUNGIZONE [Concomitant]
     Dosage: UNK
     Route: 065
     Dates: start: 20120812, end: 20120812
  44. FUNGIZONE [Concomitant]
     Dosage: UNK
     Route: 065
     Dates: start: 20120820, end: 20120820
  45. FUNGIZONE [Concomitant]
     Dosage: UNK
     Route: 065
     Dates: start: 20120801, end: 20121230
  46. ACETAMINOPHEN [Concomitant]
     Indication: PAIN
     Dosage: UNK
     Route: 065
     Dates: start: 20120730, end: 20120730
  47. ACETAMINOPHEN [Concomitant]
     Dosage: UNK
     Route: 065
     Dates: start: 20120810, end: 20120814
  48. ACETAMINOPHEN [Concomitant]
     Dosage: UNK
     Route: 065
     Dates: start: 20120814, end: 20120814
  49. SOLU-MEDROL [Concomitant]
     Indication: PROPHYLAXIS
     Dosage: UNK
     Route: 065
     Dates: start: 20120803, end: 20120803
  50. SOLU-MEDROL [Concomitant]
     Dosage: UNK
     Route: 065
     Dates: start: 20120731, end: 20120802
  51. SOLU-MEDROL [Concomitant]
     Dosage: UNK
     Route: 065
     Dates: start: 20120730, end: 20120730
  52. SOLU-MEDROL [Concomitant]
     Dosage: UNK
     Route: 065
     Dates: start: 20120806, end: 20120809
  53. SOLU-MEDROL [Concomitant]
     Dosage: UNK
     Route: 065
     Dates: start: 20120804, end: 20120805
  54. SOLU-MEDROL [Concomitant]
     Dosage: UNK
     Route: 065
     Dates: start: 20120810, end: 20120812
  55. SOLU-MEDROL [Concomitant]
     Dosage: UNK
     Route: 065
  56. SOLU-MEDROL [Concomitant]
     Dosage: UNK
     Route: 042
     Dates: start: 20120730, end: 20120812
  57. GRAN [Concomitant]
     Indication: APLASTIC ANAEMIA
     Dosage: UNK
     Route: 065
     Dates: start: 20120801, end: 20120803
  58. GRAN [Concomitant]
     Dosage: UNK
     Route: 065
     Dates: start: 20120729, end: 20120729
  59. GRAN [Concomitant]
     Dosage: UNK
     Route: 065
     Dates: start: 20120731, end: 20120731
  60. GRAN [Concomitant]
     Dosage: UNK
     Route: 065
     Dates: start: 20120730, end: 20120730
  61. GRAN [Concomitant]
     Dosage: UNK
     Route: 065
     Dates: start: 20120804, end: 20120809
  62. GRAN [Concomitant]
     Dosage: UNK
     Route: 065
     Dates: start: 20120810, end: 20120815
  63. GRAN [Concomitant]
     Dosage: UNK
     Route: 065
     Dates: start: 20120821, end: 20120821
  64. GRAN [Concomitant]
     Dosage: UNK
     Route: 065
     Dates: start: 20120816, end: 20120819
  65. GRAN [Concomitant]
     Dosage: UNK
     Route: 065
     Dates: start: 20120820, end: 20120820
  66. GRAN [Concomitant]
     Dosage: UNK
     Route: 065
     Dates: start: 20120730, end: 20120930
  67. GRAN [Concomitant]
     Dosage: UNK
     Route: 065
     Dates: start: 20120917, end: 20120925
  68. GRAN [Concomitant]
     Dosage: UNK
     Route: 065
     Dates: start: 20121022, end: 20121023
  69. GRAN [Concomitant]
     Dosage: UNK
     Route: 065
     Dates: start: 20121230, end: 20121230
  70. TAZOCILLINE [Concomitant]
     Indication: PRODUCT USED FOR UNKNOWN INDICATION
     Dosage: UNK
     Route: 065
     Dates: start: 20120729, end: 20120729
  71. TAZOCILLINE [Concomitant]
     Dosage: UNK
     Route: 065
     Dates: start: 20120731, end: 20120803
  72. TAZOCILLINE [Concomitant]
     Dosage: UNK
     Route: 065
     Dates: start: 20120729, end: 20120803
  73. TAZOCILLINE [Concomitant]
     Dosage: UNK
     Route: 065
     Dates: start: 20120730, end: 20120730
  74. TAZOCILLINE [Concomitant]
     Dosage: UNK
     Route: 065
     Dates: start: 20120807, end: 20120809
  75. TAZOCILLINE [Concomitant]
     Dosage: UNK
     Route: 065
     Dates: start: 20120804, end: 20120809
  76. TAZOCILLINE [Concomitant]
     Dosage: UNK
     Route: 065
     Dates: start: 20120806, end: 20120806
  77. TAZOCILLINE [Concomitant]
     Dosage: UNK
     Route: 065
     Dates: start: 20120804, end: 20120805
  78. TAZOCILLINE [Concomitant]
     Dosage: UNK
     Route: 065
     Dates: start: 20120810, end: 20120812
  79. FUROSEMIDE [Concomitant]
     Indication: PRODUCT USED FOR UNKNOWN INDICATION
     Dosage: UNK
     Route: 065
     Dates: start: 20120802, end: 20120802
  80. FUROSEMIDE [Concomitant]
     Dosage: UNK
     Route: 065
     Dates: start: 20120816, end: 20120819
  81. SAXIZON [Concomitant]
     Indication: PROPHYLAXIS
     Dosage: UNK
     Route: 065
     Dates: start: 20120730, end: 20120730
  82. SAXIZON [Concomitant]
     Dosage: UNK
     Route: 065
     Dates: start: 20120729, end: 20120729
  83. SAXIZON [Concomitant]
     Dosage: UNK
     Route: 065
     Dates: start: 20120815, end: 20120815
  84. SAXIZON [Concomitant]
     Dosage: UNK
     Route: 065
     Dates: start: 20120813, end: 20120813
  85. SAXIZON [Concomitant]
     Dosage: UNK
     Route: 065
     Dates: start: 20120816, end: 20120816
  86. SAXIZON [Concomitant]
     Dosage: UNK
     Route: 065
     Dates: start: 20120817, end: 20120817
  87. SAXIZON [Concomitant]
     Dosage: UNK
     Route: 065
     Dates: start: 20120730
  88. OLMETEC [Concomitant]
     Indication: HYPERTENSION
     Dosage: UNK
     Route: 065
     Dates: start: 20120809, end: 20120809
  89. OLMETEC [Concomitant]
     Dosage: UNK
     Route: 065
     Dates: start: 20120806, end: 20120806
  90. OLMETEC [Concomitant]
     Dosage: UNK
     Route: 065
     Dates: start: 20120816, end: 20120816
  91. OLMETEC [Concomitant]
     Dosage: UNK
     Route: 065
     Dates: start: 20120817, end: 20120817
  92. OLMETEC [Concomitant]
     Dosage: UNK
     Route: 048
     Dates: start: 20120809, end: 20120820
  93. ISODINE [Concomitant]
     Indication: INFECTION PROPHYLAXIS
     Dosage: UNK
     Route: 065
     Dates: start: 20120814, end: 20120814
  94. ISODINE [Concomitant]
     Dosage: UNK
     Route: 065
     Dates: start: 20120805, end: 20120805
  95. ISODINE [Concomitant]
     Dosage: UNK
     Route: 048
     Dates: start: 20120805
  96. TRIBENOSIDE LIDOCAINE [Concomitant]
     Indication: PROPHYLAXIS
     Dosage: UNK
     Route: 065
     Dates: start: 20120814, end: 20120814
  97. TRIBENOSIDE LIDOCAINE [Concomitant]
     Dosage: UNK
     Route: 065
     Dates: start: 20120816, end: 20120816
  98. PREDNISOLONE ACETATE [Concomitant]
     Indication: PRODUCT USED FOR UNKNOWN INDICATION
     Dosage: UNK
     Route: 065
     Dates: start: 20120813, end: 20120813
  99. PREDNISOLONE ACETATE [Concomitant]
     Dosage: UNK
     Route: 065
     Dates: start: 20120820, end: 20120820
  100. LEVOFLOXACIN [Concomitant]
     Indication: ANTI-INFECTIVE THERAPY
     Dosage: UNK
     Route: 065
     Dates: start: 20120813, end: 20120813
  101. PAXIL [Concomitant]
     Indication: ANXIETY DISORDER
     Dosage: UNK
     Route: 065
     Dates: start: 20120811, end: 20120811
  102. PAXIL [Concomitant]
     Dosage: UNK
     Route: 065
     Dates: start: 20120816, end: 20120816
  103. PAXIL [Concomitant]
     Dosage: UNK
     Route: 065
     Dates: start: 20120811, end: 20120821
  104. MAGTECT [Concomitant]
     Indication: CONSTIPATION
     Dosage: UNK
     Route: 065
     Dates: start: 20120810, end: 20120810
  105. MAGTECT [Concomitant]
     Dosage: UNK
     Route: 065
     Dates: start: 20120810, end: 20120811
  106. MAGTECT [Concomitant]
     Dosage: UNK
     Route: 065
     Dates: start: 20130130, end: 20130130
  107. CEFEPIME DIHYDROCHLORIDE [Concomitant]
     Indication: PRODUCT USED FOR UNKNOWN INDICATION
     Dosage: UNK
     Route: 065
     Dates: start: 20120815, end: 20120815
  108. CEFEPIME DIHYDROCHLORIDE [Concomitant]
     Dosage: UNK
     Route: 065
     Dates: start: 20120814, end: 20120814
  109. FLURBIPROFEN AXETIL [Concomitant]
     Indication: HYPOPHAGIA
     Dosage: UNK
     Route: 065
     Dates: start: 20120815, end: 20120815
  110. FLURBIPROFEN AXETIL [Concomitant]
     Indication: DRUG INEFFECTIVE
  111. DORIPENEM HYDRATE [Concomitant]
     Indication: PRODUCT USED FOR UNKNOWN INDICATION
     Dosage: UNK
     Route: 065
     Dates: start: 20120815, end: 20120815
  112. DORIPENEM HYDRATE [Concomitant]
     Dosage: UNK
     Route: 065
     Dates: start: 20120816, end: 20120820
  113. DORIPENEM HYDRATE [Concomitant]
     Dosage: UNK
     Route: 065
     Dates: start: 20120820, end: 20120820
  114. DORIPENEM HYDRATE [Concomitant]
     Dosage: UNK
     Route: 065
     Dates: start: 20120816, end: 20120819
  115. DORIPENEM HYDRATE [Concomitant]
     Dosage: UNK
     Route: 065
     Dates: start: 20120821, end: 20120821
  116. ACETATED RINGER^S SOLUTION (WITH GLUCOSE) [Concomitant]
     Indication: PRODUCT USED FOR UNKNOWN INDICATION
     Dosage: UNK
     Route: 065
     Dates: start: 20120815, end: 20120815
  117. ACETATED RINGER^S SOLUTION (WITH GLUCOSE) [Concomitant]
     Dosage: UNK
     Route: 065
     Dates: start: 20120817, end: 20120817
  118. ACETATED RINGER^S SOLUTION (WITH GLUCOSE) [Concomitant]
     Dosage: UNK
     Dates: start: 20120816, end: 20120816
  119. ACETATED RINGER^S SOLUTION (WITH GLUCOSE) [Concomitant]
     Dosage: UNK
     Route: 065
     Dates: start: 20120820, end: 20120820
  120. AMLODIPINE BESILATE [Concomitant]
     Indication: PRODUCT USED FOR UNKNOWN INDICATION
     Dosage: UNK
     Route: 065
     Dates: start: 20120821, end: 20120821
  121. SCOPOLAMINE BUTYLBROMIDE [Concomitant]
     Indication: PRODUCT USED FOR UNKNOWN INDICATION
     Dosage: UNK
     Route: 065
     Dates: start: 20120821, end: 20120821
  122. KETOPROFEN [Concomitant]
     Indication: PRODUCT USED FOR UNKNOWN INDICATION
     Dosage: UNK
     Route: 065
     Dates: start: 20120820, end: 20120820
  123. KETOPROFEN [Concomitant]
     Indication: BACK PAIN
     Dosage: UNK
     Route: 065
     Dates: start: 20120816, end: 20120816
  124. LORAZEPAM [Concomitant]
     Indication: ANXIETY
     Dosage: UNK
     Route: 065
     Dates: start: 20120816, end: 20120816
  125. CARBAZOCHROME SODIUM SULFONATE [Concomitant]
     Indication: PRODUCT USED FOR UNKNOWN INDICATION
     Dosage: UNK
     Route: 065
     Dates: start: 20120821, end: 20120821
  126. CARBAZOCHROME SODIUM SULFONATE [Concomitant]
     Dosage: UNK
     Route: 065
     Dates: start: 20120820, end: 20120820
  127. CARBAZOCHROME SODIUM SULFONATE [Concomitant]
     Dosage: UNK
     Route: 065
     Dates: start: 20120819, end: 20120819
  128. TRANEXAMIC ACID [Concomitant]
     Indication: PRODUCT USED FOR UNKNOWN INDICATION
     Dosage: UNK
     Route: 065
     Dates: start: 20120821, end: 20120821
  129. TRANEXAMIC ACID [Concomitant]
     Dosage: UNK
     Route: 065
     Dates: start: 20120819, end: 20120819
  130. CHLORPHENIRAMINE MALEATE [Concomitant]
     Indication: PRODUCT USED FOR UNKNOWN INDICATION
     Dosage: UNK
     Route: 065
     Dates: start: 20120819, end: 20120819
  131. CHLORPHENIRAMINE MALEATE [Concomitant]
     Dosage: UNK
     Route: 065
     Dates: start: 20120818, end: 20120818
  132. MIXED AMINO ACID CARBOHYDRATE ELECTROCYTE VITAMIN COMBINE [Concomitant]
     Indication: PRODUCT USED FOR UNKNOWN INDICATION
     Dosage: UNK
     Route: 065
     Dates: start: 20120818, end: 20120820
  133. MAINTENANCE MEDIUM [Concomitant]
     Indication: PRODUCT USED FOR UNKNOWN INDICATION
     Dosage: UNK
     Route: 065
     Dates: start: 20120816, end: 20120816
  134. FREEZE DRIED POLYETHYLENE GLYCOL TREATED HUMAN NORMAL IMM [Concomitant]
     Indication: PRODUCT USED FOR UNKNOWN INDICATION
     Dosage: UNK
     Route: 065
     Dates: start: 20120816, end: 20120816
  135. ZOSYN [Concomitant]
     Indication: PROPHYLAXIS
     Dosage: UNK
     Route: 065
     Dates: start: 20120730, end: 20120812
  136. BAKTAR [Concomitant]
     Indication: INFECTION PROPHYLAXIS
     Dosage: UNK
     Route: 065
     Dates: end: 20120821
  137. BIOFERMIN R [Concomitant]
     Indication: PROPHYLAXIS
     Dosage: UNK
     Route: 065
  138. PREDONINE [Concomitant]
     Indication: APLASTIC ANAEMIA
     Dosage: UNK
     Route: 065
     Dates: start: 20120813, end: 20120828
  139. BORRAZA-G [Concomitant]
     Indication: HAEMORRHOIDS
     Dosage: UNK
     Route: 065
     Dates: start: 20120814, end: 20120814
  140. BORRAZA-G [Concomitant]
     Dosage: UNK
     Route: 065
     Dates: start: 20121013, end: 20121013
  141. MAGLAX [Concomitant]
     Indication: CONSTIPATION
     Dosage: UNK
     Route: 065
     Dates: start: 20121101, end: 20121220
  142. U-PAN [Concomitant]
     Indication: ANXIETY DISORDER
     Dosage: UNK
     Route: 065
     Dates: start: 20120816, end: 20120816
  143. U-PAN [Concomitant]
     Indication: INSOMNIA
     Dosage: UNK
     Route: 065
     Dates: start: 20120831, end: 20120831
  144. U-PAN [Concomitant]
     Dosage: UNK
     Route: 065
     Dates: start: 20121009
  145. POLARAMINE [Concomitant]
     Indication: PROPHYLAXIS
     Dosage: UNK
     Route: 065
     Dates: start: 20120818
  146. REMINARON [Concomitant]
     Indication: APLASTIC ANAEMIA
     Dosage: UNK
     Route: 065
     Dates: start: 20121006, end: 20121126
  147. PRIMPERAN [Concomitant]
     Indication: PROPHYLAXIS OF NAUSEA AND VOMITING
     Dosage: UNK
     Route: 065
     Dates: start: 20120905, end: 20120905
  148. VITAMIN B12 [Concomitant]
     Indication: PROPHYLAXIS
     Dosage: UNK
     Route: 065
     Dates: start: 20120905, end: 20120905
  149. RITUXAN [Concomitant]
     Indication: APLASTIC ANAEMIA
     Dosage: UNK
     Route: 065
     Dates: start: 20120830, end: 20120830
  150. RITUXAN [Concomitant]
     Dosage: UNK
     Route: 065
     Dates: start: 20120906, end: 20120906
  151. VANCOMYCIN [Concomitant]
     Indication: PROPHYLAXIS
     Dosage: UNK
     Route: 065
     Dates: start: 20120916, end: 20120921
  152. VANCOMYCIN [Concomitant]
     Dosage: UNK
     Route: 065
     Dates: start: 20121003, end: 20121016
  153. VANCOMYCIN [Concomitant]
     Dosage: UNK
     Route: 065
     Dates: start: 20121207, end: 20121218
  154. VANCOMYCIN [Concomitant]
     Dosage: UNK
     Route: 065
     Dates: start: 20121103, end: 20121104
  155. VANCOMYCIN HYDROCHLORIDE [Concomitant]
     Indication: PROPHYLAXIS
     Dosage: UNK
     Route: 065
     Dates: start: 20121008, end: 20121008
  156. LAXOBERON [Concomitant]
     Indication: CONSTIPATION
     Dosage: UNK
     Route: 065
     Dates: start: 20121024, end: 20121103
  157. AZACTAM [Concomitant]
     Indication: PROPHYLAXIS
     Dosage: UNK
     Route: 065
     Dates: start: 20120916, end: 20120922
  158. MINOCYCLINE [Concomitant]
     Indication: PROPHYLAXIS
     Dosage: UNK
     Route: 065
     Dates: start: 20120916, end: 20120921
  159. BFLUID [Concomitant]
     Indication: FLUID REPLACEMENT
     Dosage: UNK
     Route: 065
     Dates: start: 20120917, end: 20121003
  160. BFLUID [Concomitant]
     Dosage: UNK
     Route: 065
     Dates: start: 20121109, end: 20121220
  161. METHOTREXATE [Concomitant]
     Indication: APLASTIC ANAEMIA
     Dosage: UNK
     Route: 065
     Dates: start: 20121006, end: 20121006
  162. METHOTREXATE [Concomitant]
     Dosage: UNK
     Route: 065
     Dates: start: 20121011, end: 20121011
  163. NEW LECICARBON [Concomitant]
     Indication: CONSTIPATION
     Dosage: UNK
     Route: 065
     Dates: start: 20121028, end: 20121028
  164. ENDOXAN [Concomitant]
     Indication: APLASTIC ANAEMIA
     Dosage: UNK
     Route: 065
     Dates: start: 20121001, end: 20121003
  165. PRIMOBOLAN [Concomitant]
     Indication: APLASTIC ANAEMIA
     Dosage: UNK
     Route: 065
     Dates: start: 20130119
  166. BROTIZOLAM [Concomitant]
     Indication: INSOMNIA
     Dosage: UNK
     Route: 065
     Dates: start: 20121114, end: 20121114
  167. AMIKACIN SULFATE [Concomitant]
     Indication: PROPHYLAXIS
     Dosage: UNK
     Route: 065
     Dates: start: 20120922, end: 20120928
  168. KCL [Concomitant]
     Indication: PROPHYLAXIS
     Dosage: 20 MEQ, UNK
     Route: 065
     Dates: start: 20120923, end: 20120928
  169. KCL [Concomitant]
     Dosage: 20 MEQ, UNK
     Route: 065
     Dates: start: 20121115, end: 20121126
  170. KCL [Concomitant]
     Dosage: 20 MEQ, UNK
     Route: 065
     Dates: start: 20121129, end: 20121129
  171. KCL [Concomitant]
     Dosage: 20 MEQ, UNK
     Route: 065
     Dates: start: 20121212, end: 20121212

REACTIONS (17)
  - Hydronephrosis [Not Recovered/Not Resolved]
  - Renal failure [Not Recovered/Not Resolved]
  - Cystitis haemorrhagic [Recovered/Resolved]
  - Haematuria [Unknown]
  - Post transplant lymphoproliferative disorder [Unknown]
  - Pneumonia bacterial [Recovered/Resolved]
  - Pneumonia staphylococcal [Not Recovered/Not Resolved]
  - Neutropenia [Recovered/Resolved]
  - Haemoglobin decreased [Recovered/Resolved]
  - Blood beta-D-glucan increased [Recovered/Resolved]
  - Oedema [Recovered/Resolved]
  - Oedema peripheral [Unknown]
  - Pyrexia [Recovered/Resolved]
  - Oral infection [Recovered/Resolved]
  - White blood cell count decreased [Recovered/Resolved]
  - Platelet count decreased [Recovered/Resolved]
  - Nasopharyngitis [Recovered/Resolved]
